FAERS Safety Report 11179124 (Version 2)
Quarter: 2015Q2

REPORT INFORMATION
  Report Type: Spontaneous
  Country: AU (occurrence: None)
  Receive Date: 20150522
  Receipt Date: 20150610
  Transmission Date: 20150821
  Serious: Yes (Life-Threatening)
  Sender: FDA-Public Use
  Company Number: GAM-133-15-AU

PATIENT
  Age: 27 Year

DRUGS (3)
  1. ANTIBIOTICS [Concomitant]
     Active Substance: UNSPECIFIED INGREDIENT
  2. INOTROPES [Concomitant]
  3. OCTAGAM IMMUNE GLOBULIN (HUMAN) [Suspect]
     Active Substance: HUMAN IMMUNOGLOBULIN G
     Indication: STAPHYLOCOCCAL SEPSIS
     Dosage: INTRAVENOUS (NOT OTHERWISE SPECIFIED)?
     Route: 042
     Dates: start: 20150423, end: 20150423

REACTIONS (3)
  - Ventricular fibrillation [None]
  - Cardiac arrest [None]
  - Infusion related reaction [None]

NARRATIVE: CASE EVENT DATE: 20150423
